FAERS Safety Report 21412262 (Version 1)
Quarter: 2022Q4

REPORT INFORMATION
  Report Type: Other
  Country: US (occurrence: US)
  Receive Date: 20221005
  Receipt Date: 20221005
  Transmission Date: 20230113
  Serious: Yes (Other)
  Sender: FDA-Public Use
  Company Number: US-Osmotica_Pharmaceutical_US_LLC-POI0573202200103

PATIENT
  Age: 9 Year
  Sex: Male
  Weight: 30.8 kg

DRUGS (3)
  1. METHYLPHENIDATE HYDROCHLORIDE [Suspect]
     Active Substance: METHYLPHENIDATE HYDROCHLORIDE
     Indication: Attention deficit hyperactivity disorder
     Dates: end: 2021
  2. GUANFACINE [Concomitant]
     Active Substance: GUANFACINE
     Indication: Attention deficit hyperactivity disorder
     Dates: end: 2021
  3. CHILDRENS MULTIVITAMIN [Concomitant]
     Indication: Product used for unknown indication
     Dosage: UNKNOWN

REACTIONS (2)
  - Dystonia [Recovered/Resolved]
  - Oromandibular dystonia [Recovered/Resolved]

NARRATIVE: CASE EVENT DATE: 20210101
